FAERS Safety Report 6927789-1 (Version None)
Quarter: 2010Q3

REPORT INFORMATION
  Report Type: 
  Country: None (occurrence: None)
  Receive Date: 20100816
  Receipt Date: 20100816
  Transmission Date: 20110219
  Serious: Yes (Other)
  Sender: FDA-Public Use
  Company Number: None

PATIENT
  Age: 34 Year
  Sex: Female
  Weight: 72.5755 kg

DRUGS (1)
  1. CONJUGATED LINOLEIC ACID 1000 MG - TONALIN- VITAMIN WORLD, INC. [Suspect]
     Indication: WEIGHT DECREASED
     Dosage: 2 SOFTGELS TWICE DAILY PO
     Route: 048
     Dates: start: 20100804, end: 20100810

REACTIONS (3)
  - CARDIO-RESPIRATORY ARREST [None]
  - DRUG INTERACTION [None]
  - GAIT DISTURBANCE [None]
